FAERS Safety Report 7938541-2 (Version None)
Quarter: 2011Q4

REPORT INFORMATION
  Report Type: 
  Country: None (occurrence: None)
  Receive Date: 20111123
  Receipt Date: 20111111
  Transmission Date: 20120403
  Serious: Yes (Other)
  Sender: FDA-Public Use
  Company Number: ES-BAXTER-2011BH037048

PATIENT
  Age: 51 Year

DRUGS (1)
  1. FEIBA VH [Suspect]
     Indication: MELAENA
     Dosage: DOSE UNIT:UNITS PER KILOGRAM
     Route: 065
     Dates: start: 20090201

REACTIONS (1)
  - TREATMENT FAILURE [None]
